FAERS Safety Report 6986142-5 (Version None)
Quarter: 2010Q3

REPORT INFORMATION
  Report Type: 
  Country: None (occurrence: None)
  Receive Date: 20100915
  Receipt Date: 20090610
  Transmission Date: 20110219
  Serious: No
  Sender: FDA-Public Use
  Company Number: US-WYE-H09398209

PATIENT
  Sex: Female
  Weight: 81.72 kg

DRUGS (12)
  1. PRISTIQ [Suspect]
     Indication: DEPRESSION
     Route: 048
     Dates: start: 20090401, end: 20090501
  2. PRISTIQ [Suspect]
     Route: 048
     Dates: start: 20090502, end: 20090511
  3. PRISTIQ [Suspect]
     Route: 048
     Dates: start: 20090512
  4. ACTOS [Concomitant]
  5. SIMVASTATIN [Concomitant]
  6. ATIVAN [Concomitant]
  7. CALCIUM WITH VITAMIN D [Concomitant]
  8. ASCORBIC ACID/CHONDROITIN SULFATE/GLUCOSAMINE SULFATE/MANGANESE [Concomitant]
  9. MULTI-VITAMINS [Concomitant]
  10. ZESTORETIC [Concomitant]
  11. EVISTA [Concomitant]
  12. ASPIRIN [Concomitant]

REACTIONS (3)
  - ABDOMINAL PAIN [None]
  - FLATULENCE [None]
  - WEIGHT LOSS POOR [None]
